FAERS Safety Report 11296300 (Version 1)
Quarter: 2015Q3

REPORT INFORMATION
  Report Type: Spontaneous
  Country: US (occurrence: US)
  Receive Date: 20150722
  Receipt Date: 20150722
  Transmission Date: 20151125
  Serious: No
  Sender: FDA-Public Use
  Company Number: US-ELI_LILLY_AND_COMPANY-US200909003614

PATIENT
  Sex: Female

DRUGS (9)
  1. EFFIENT [Suspect]
     Active Substance: PRASUGREL HYDROCHLORIDE
     Dosage: 5 MG, DAILY (1/D)
     Dates: start: 20090910
  2. VITAMIN C [Concomitant]
     Active Substance: ASCORBIC ACID
  3. TOPROL XL [Concomitant]
     Active Substance: METOPROLOL SUCCINATE
     Dosage: 50 MG, UNK
  4. CALCIUM [Concomitant]
     Active Substance: CALCIUM
  5. GLUCOSAMINE [Concomitant]
     Active Substance: GLUCOSAMINE
  6. LEVOXYL [Concomitant]
     Active Substance: LEVOTHYROXINE SODIUM
     Dosage: 0.88 MG, UNK
  7. ZETIA [Concomitant]
     Active Substance: EZETIMIBE
     Dosage: 10 MG, UNK
  8. ASA [Concomitant]
     Active Substance: ASPIRIN
     Dosage: 81 MG, 2/D
  9. MOTRIN [Concomitant]
     Active Substance: IBUPROFEN
     Dosage: 200 MG, 3/D
     Dates: start: 20090914

REACTIONS (7)
  - Back pain [Not Recovered/Not Resolved]
  - Joint swelling [Not Recovered/Not Resolved]
  - Contusion [Not Recovered/Not Resolved]
  - Peripheral swelling [Not Recovered/Not Resolved]
  - Erythema [Not Recovered/Not Resolved]
  - Contusion [Unknown]
  - Fear [Unknown]

NARRATIVE: CASE EVENT DATE: 20090911
